FAERS Safety Report 5117660-2 (Version None)
Quarter: 2006Q3

REPORT INFORMATION
  Report Type: 
  Country: None (occurrence: None)
  Receive Date: 20060926
  Receipt Date: 20060907
  Transmission Date: 20061208
  Serious: Yes (Other)
  Sender: FDA-Public Use
  Company Number: GB200609001669

PATIENT
  Sex: Male

DRUGS (2)
  1. XIGRIS [Suspect]
     Indication: SEPSIS
     Dosage: 24 MG/KG, EVERY HOUR, UNK
  2. HEPARIN [Concomitant]

REACTIONS (3)
  - COAGULATION TIME PROLONGED [None]
  - HAEMORRHAGE INTRACRANIAL [None]
  - THROMBOCYTOPENIA [None]
